FAERS Safety Report 9316874 (Version 1)
Quarter: 2012Q4

REPORT INFORMATION
  Report Type: Spontaneous
  Country: US (occurrence: None)
  Receive Date: 20121217
  Receipt Date: 20121217
  Transmission Date: 20130627
  Serious: Yes (Hospitalization)
  Sender: FDA-Public Use
  Company Number: 7181420

PATIENT
  Age: 63 Year
  Sex: Female

DRUGS (7)
  1. EUTHYROX [Suspect]
     Indication: HYPOTHYROIDISM
     Dosage: 75 mcg
     Route: 048
     Dates: start: 2004
  2. EUTHYROX [Suspect]
     Indication: HASHIMOTO^S THYROIDITIS
     Dosage: 75 mcg
     Route: 048
     Dates: start: 2004
  3. EUTHYROX [Suspect]
     Indication: HYPOTHYROIDISM
     Dosage: (88 mcg)
     Route: 048
  4. EUTHYROX [Suspect]
     Indication: HASHIMOTO^S THYROIDITIS
     Dosage: (88 mcg)
     Route: 048
  5. EUTHYROX [Suspect]
     Indication: HYPOTHYROIDISM
     Dosage: (100 mcg)
     Route: 048
  6. EUTHYROX [Suspect]
     Indication: HASHIMOTO^S THYROIDITIS
     Dosage: (100 mcg)
     Route: 048
  7. PANTOPROZOL (PANTOPRAZOLE) [Concomitant]

REACTIONS (4)
  - Myocardial infarction [None]
  - Cardiac discomfort [None]
  - Blood thyroid stimulating hormone decreased [None]
  - Blood thyroid stimulating hormone decreased [None]
